FAERS Safety Report 18114176 (Version 5)
Quarter: 2022Q3

REPORT INFORMATION
  Report Type: Spontaneous
  Country: JP (occurrence: JP)
  Receive Date: 20200805
  Receipt Date: 20220809
  Transmission Date: 20221026
  Serious: Yes (Hospitalization, Other)
  Sender: FDA-Public Use
  Company Number: JP-BRISTOL-MYERS SQUIBB COMPANY-BMS-2020-062116

PATIENT
  Age: 66 Year
  Sex: Female

DRUGS (1)
  1. OPDIVO [Suspect]
     Active Substance: NIVOLUMAB
     Indication: Non-small cell lung cancer stage IV
     Dosage: 21 CYCLES
     Route: 041
     Dates: start: 20160810

REACTIONS (1)
  - Acute lung injury [Recovering/Resolving]

NARRATIVE: CASE EVENT DATE: 20180118
